FAERS Safety Report 6557694-4 (Version None)
Quarter: 2010Q1

REPORT INFORMATION
  Report Type: 
  Country: None (occurrence: None)
  Receive Date: 20100129
  Receipt Date: 20100121
  Transmission Date: 20100710
  Serious: Yes (Other)
  Sender: FDA-Public Use
  Company Number: US-AMGEN-QUU387407

PATIENT
  Sex: Female

DRUGS (1)
  1. ENBREL [Suspect]
     Indication: RHEUMATOID ARTHRITIS
     Route: 058
     Dates: start: 20011220

REACTIONS (4)
  - HYPERPARATHYROIDISM [None]
  - INJECTION SITE PAIN [None]
  - TENDON DISORDER [None]
  - TOE OPERATION [None]
